FAERS Safety Report 4380809-3 (Version None)
Quarter: 2004Q2

REPORT INFORMATION
  Report Type: 
  Country: None (occurrence: None)
  Receive Date: 20040616
  Receipt Date: 20040603
  Transmission Date: 20050107
  Serious: Yes (Hospitalization)
  Sender: FDA-Public Use
  Company Number: 2004025525

PATIENT
  Age: 85 Year
  Sex: Male

DRUGS (5)
  1. DIFLUCAN [Suspect]
     Indication: SYSTEMIC CANDIDA
     Dosage: 100 MG (100 MG, 1 IN 1 D), ORAL
     Route: 048
     Dates: start: 20040224, end: 20040302
  2. MICAFUNGIN (MICAFUNGIN) [Suspect]
     Indication: SYSTEMIC CANDIDA
     Dosage: 50 MG (50 MG, DAILY), INTRAVENOUS
     Route: 042
     Dates: start: 20040217, end: 20040223
  3. VALPROATE SODIUM [Concomitant]
  4. SARPOGRELATE HYDROCHLORIDE (SARPOGRELATE HYDROCHLORIDE) [Concomitant]
  5. CARBOCISTEINE (CARBOCISTEINE) [Concomitant]

REACTIONS (1)
  - WHITE BLOOD CELL DISORDER [None]
